FAERS Safety Report 21246504 (Version 2)
Quarter: 2022Q4

REPORT INFORMATION
  Report Type: Spontaneous
  Country: US (occurrence: US)
  Receive Date: 20220824
  Receipt Date: 20221209
  Transmission Date: 20230112
  Serious: Yes (Other)
  Sender: FDA-Public Use
  Company Number: US-BRISTOL-MYERS SQUIBB COMPANY-2022-092834

PATIENT
  Age: 39 Year
  Sex: Male

DRUGS (4)
  1. REVLIMID [Suspect]
     Active Substance: LENALIDOMIDE
     Indication: Plasmacytoma
     Route: 048
     Dates: start: 20220610
  2. REVLIMID [Suspect]
     Active Substance: LENALIDOMIDE
     Dosage: 1-21 OF 28-DAY CYCLE
     Route: 048
     Dates: start: 20220507
  3. REVLIMID [Suspect]
     Active Substance: LENALIDOMIDE
     Dosage: 1-21 OF 28-DAY CYCLE
     Route: 048
     Dates: start: 20220808, end: 20221114
  4. REVLIMID [Suspect]
     Active Substance: LENALIDOMIDE
     Dosage: DAY 1-21
     Route: 048
     Dates: start: 20220724, end: 20221114

REACTIONS (2)
  - Hepatic enzyme increased [Unknown]
  - Intentional product use issue [Unknown]

NARRATIVE: CASE EVENT DATE: 20220815
